FAERS Safety Report 10021502 (Version 1)
Quarter: 2014Q1

REPORT INFORMATION
  Report Type: Spontaneous
  Country: US (occurrence: None)
  Receive Date: 20140318
  Receipt Date: 20140318
  Transmission Date: 20141002
  Serious: Yes (Other)
  Sender: FDA-Public Use
  Company Number: None

PATIENT
  Age: 67 Year
  Sex: Male
  Weight: 81.65 kg

DRUGS (1)
  1. SUMATRIPTAN SUCCINATE INJECTION 6 MG/0.5 ML SUN PHARMA [Suspect]
     Indication: MIGRAINE
     Dates: start: 20130315, end: 20130715

REACTIONS (3)
  - Product substitution issue [None]
  - Drug ineffective [None]
  - Product quality issue [None]
